FAERS Safety Report 23939304 (Version 1)
Quarter: 2024Q2

REPORT INFORMATION
  Report Type: Spontaneous
  Country: BR (occurrence: BR)
  Receive Date: 20240605
  Receipt Date: 20240605
  Transmission Date: 20240716
  Serious: Yes (Other)
  Sender: FDA-Public Use
  Company Number: BR-NOVOPROD-1229997

PATIENT
  Age: 56 Year
  Sex: Female
  Weight: 71 kg

DRUGS (15)
  1. OZEMPIC [Suspect]
     Active Substance: SEMAGLUTIDE
     Indication: Type 2 diabetes mellitus
     Dosage: 0.25 MG, QW
     Dates: start: 202311
  2. XIGDUO XR [Concomitant]
     Active Substance: DAPAGLIFLOZIN PROPANEDIOL\METFORMIN HYDROCHLORIDE
     Dosage: 10/1000MG
  3. ROSUVASTATIN [Concomitant]
     Active Substance: ROSUVASTATIN
     Dosage: 10 MG
  4. LOSARTAN POTASSIUM [Concomitant]
     Active Substance: LOSARTAN POTASSIUM
     Dosage: 50 MG
  5. NEBIVOLOL HYDROCHLORIDE [Concomitant]
     Active Substance: NEBIVOLOL HYDROCHLORIDE
     Dosage: 5 MG
  6. ZINC [Concomitant]
     Active Substance: PYRITHIONE ZINC\ZINC\ZINC CHLORIDE
     Indication: Supplementation therapy
     Dosage: 25 MG (AFTER LUNCH)
  7. CHELATED MAGNESIUM [MAGNESIUM CHELATE] [Concomitant]
     Indication: Supplementation therapy
     Dosage: 200 MG (AFTER LUNCH)
  8. VITAMIN A [Concomitant]
     Active Substance: VITAMIN A
     Indication: Supplementation therapy
     Dosage: 2000 IU (AFTER BREAKFAST)
  9. VITAMIN D3 [Concomitant]
     Active Substance: CHOLECALCIFEROL
     Indication: Supplementation therapy
     Dosage: 5000 IU (AFTER BREAKFAST)
  10. .ALPHA.-TOCOPHEROL [Concomitant]
     Active Substance: .ALPHA.-TOCOPHEROL
     Indication: Supplementation therapy
     Dosage: 400 IU (AFTER BREAKFAST)
  11. VITAMIN B6 [Concomitant]
     Active Substance: PYRIDOXINE HYDROCHLORIDE
     Indication: Supplementation therapy
     Dosage: 50 MG (AFTER BREAKFAST)
  12. FOLIC ACID [Concomitant]
     Active Substance: FOLIC ACID
     Indication: Supplementation therapy
     Dosage: 5 MG (AFTER BREAKFAST)
  13. METHYLCOBALAMIN [Concomitant]
     Active Substance: METHYLCOBALAMIN
     Indication: Supplementation therapy
     Dosage: 2 MG (AFTER BREAKFAST)
  14. PROPOLIS WAX [Concomitant]
     Active Substance: PROPOLIS WAX
     Indication: Supplementation therapy
     Dosage: 250MG AFTER BREAKFAST
  15. VITAMIN K 2 [Concomitant]
     Indication: Supplementation therapy
     Dosage: 100 ?G AFTER BREAKFAST

REACTIONS (2)
  - Alopecia [Not Recovered/Not Resolved]
  - Inappropriate schedule of product administration [Not Recovered/Not Resolved]

NARRATIVE: CASE EVENT DATE: 20231101
